FAERS Safety Report 16826893 (Version 1)
Quarter: 2019Q3

REPORT INFORMATION
  Report Type: Spontaneous
  Country: US (occurrence: US)
  Receive Date: 20190727
  Receipt Date: 20190727
  Transmission Date: 20191005
  Serious: Yes (Hospitalization)
  Sender: FDA-Public Use
  Company Number: None

PATIENT
  Age: 37 Year
  Sex: Female
  Weight: 64.1 kg

DRUGS (1)
  1. CISPLATIN. [Suspect]
     Active Substance: CISPLATIN
     Dates: end: 20190708

REACTIONS (5)
  - Vaginal haemorrhage [None]
  - Constipation [None]
  - Hypotension [None]
  - Deep vein thrombosis [None]
  - Haemoglobin decreased [None]

NARRATIVE: CASE EVENT DATE: 20190722
